FAERS Safety Report 10488042 (Version 2)
Quarter: 2014Q4

REPORT INFORMATION
  Report Type: Spontaneous
  Country: US (occurrence: US)
  Receive Date: 20141001
  Receipt Date: 20141014
  Transmission Date: 20150528
  Serious: Yes (Hospitalization)
  Sender: FDA-Public Use
  Company Number: US-009507513-1409USA014373

PATIENT
  Sex: Female

DRUGS (13)
  1. K-DUR [Concomitant]
     Active Substance: POTASSIUM CHLORIDE
  2. SOTALOL HYDROCHLORIDE. [Concomitant]
     Active Substance: SOTALOL HYDROCHLORIDE
     Dosage: UNK
  3. CLONIDINE. [Concomitant]
     Active Substance: CLONIDINE
  4. PLETAL [Concomitant]
     Active Substance: CILOSTAZOL
  5. ZYRTEC [Concomitant]
     Active Substance: CETIRIZINE HYDROCHLORIDE
  6. LOTRIL (CLOTRIMAZOLE) [Concomitant]
  7. JANUVIA [Suspect]
     Active Substance: SITAGLIPTIN PHOSPHATE
     Indication: DIABETES MELLITUS
     Dosage: UNK
     Route: 048
     Dates: end: 20140925
  8. DICLOFENAC [Concomitant]
     Active Substance: DICLOFENAC
  9. LASIX [Concomitant]
     Active Substance: FUROSEMIDE
  10. ASPIRIN. [Concomitant]
     Active Substance: ASPIRIN
  11. LIPITOR [Concomitant]
     Active Substance: ATORVASTATIN CALCIUM
  12. NEXIUM [Concomitant]
     Active Substance: ESOMEPRAZOLE MAGNESIUM
  13. NASONEX [Concomitant]
     Active Substance: MOMETASONE FUROATE
     Route: 055

REACTIONS (3)
  - Medication residue present [Unknown]
  - Cardiac disorder [Unknown]
  - Product physical issue [Unknown]
